FAERS Safety Report 9971988 (Version 1)
Quarter: 2014Q1

REPORT INFORMATION
  Report Type: Spontaneous
  Country: US (occurrence: None)
  Receive Date: 20140305
  Receipt Date: 20140305
  Transmission Date: 20141002
  Serious: Yes (Other)
  Sender: FDA-Public Use
  Company Number: None

PATIENT
  Age: 58 Year
  Sex: Female
  Weight: 56.7 kg

DRUGS (1)
  1. LETRAZOLE (FEMARA) 2.5 MG GENERIC FEMARA [Suspect]
     Indication: BREAST CANCER STAGE II
     Route: 048
     Dates: start: 20131111, end: 20140207

REACTIONS (2)
  - Arthralgia [None]
  - Unevaluable event [None]
